FAERS Safety Report 4498776-0 (Version None)
Quarter: 2004Q4

REPORT INFORMATION
  Report Type: 
  Country: None (occurrence: None)
  Receive Date: 20041108
  Receipt Date: 20041026
  Transmission Date: 20050328
  Serious: Yes (Other)
  Sender: FDA-Public Use
  Company Number: 2004082972

PATIENT
  Age: 64 Year
  Sex: Female
  Weight: 78.0187 kg

DRUGS (6)
  1. NICOTROL [Suspect]
     Indication: SMOKING CESSATION THERAPY
     Dosage: 1-2 2MG CARTRIDGE QD UP TO 6 CARTRIDGES, INHALATION
     Route: 055
     Dates: start: 20031201
  2. ACETYLSALICYLIC ACID [Concomitant]
  3. FOSINOPRIL SODIUM [Concomitant]
  4. ATORVASTATIN CALCIUM [Concomitant]
  5. METFORMIN [Concomitant]
  6. GLIMEPIRIDE [Concomitant]

REACTIONS (1)
  - DRUG DEPENDENCE [None]
